FAERS Safety Report 17260403 (Version 1)
Quarter: 2020Q1

REPORT INFORMATION
  Report Type: Report from Study
  Country: None (occurrence: US)
  Receive Date: 20200112
  Receipt Date: 20200112
  Transmission Date: 20200409
  Serious: Yes (Hospitalization, Other)
  Sender: FDA-Public Use
  Company Number: US-ABBVIE-19K-163-3157614-00

PATIENT
  Age: 45 Year
  Sex: Male

DRUGS (2)
  1. IMBRUVICA [Suspect]
     Active Substance: IBRUTINIB
     Indication: PLASMA CELL MYELOMA
     Dosage: 140 MG, QD
     Route: 048
     Dates: start: 20190720
  2. IMBRUVICA [Suspect]
     Active Substance: IBRUTINIB
     Route: 048

REACTIONS (8)
  - Pain in extremity [Recovering/Resolving]
  - Sepsis [Unknown]
  - Back pain [Unknown]
  - Product use in unapproved indication [Unknown]
  - Burning sensation [Recovering/Resolving]
  - Eye pain [Unknown]
  - Pharyngitis [Recovering/Resolving]
  - Off label use [Unknown]

NARRATIVE: CASE EVENT DATE: 20190720
